FAERS Safety Report 21126998 (Version 1)
Quarter: 2022Q3

REPORT INFORMATION
  Report Type: Spontaneous
  Country: NL (occurrence: NL)
  Receive Date: 20220725
  Receipt Date: 20220725
  Transmission Date: 20221027
  Serious: Yes (Other)
  Sender: FDA-Public Use
  Company Number: None

PATIENT
  Age: 62 Year
  Sex: Male
  Weight: 76 kg

DRUGS (3)
  1. NEOTIGASON [Suspect]
     Active Substance: ACITRETIN
     Indication: Palmoplantar keratoderma
     Dates: start: 20211229, end: 20220613
  2. NEOTIGASON [Suspect]
     Active Substance: ACITRETIN
     Indication: Hyperkeratosis
     Dosage: 10 MILLIGRAM DAILY; 10MG/DAY ,THERAPY END DATE : ASKU
     Dates: start: 20211208
  3. NEOTIGASON [Suspect]
     Active Substance: ACITRETIN
     Indication: Skin exfoliation

REACTIONS (6)
  - Thrombocytopenia [Recovering/Resolving]
  - Dizziness [Recovering/Resolving]
  - Nausea [Recovering/Resolving]
  - Diarrhoea [Recovering/Resolving]
  - Abdominal pain [Recovering/Resolving]
  - Hepatic enzyme increased [Recovering/Resolving]

NARRATIVE: CASE EVENT DATE: 20220523
